FAERS Safety Report 7889852-0 (Version None)
Quarter: 2011Q4

REPORT INFORMATION
  Report Type: 
  Country: None (occurrence: None)
  Receive Date: 20111103
  Receipt Date: 20111026
  Transmission Date: 20120403
  Serious: Yes (Death)
  Sender: FDA-Public Use
  Company Number: US-GLAXOSMITHKLINE-A0950549A

PATIENT
  Age: 67 Year
  Sex: Female
  Weight: 68 kg

DRUGS (11)
  1. METFORMIN HCL [Concomitant]
  2. PROMACTA [Suspect]
     Indication: AUTOIMMUNE THROMBOCYTOPENIA
     Dosage: 25MG PER DAY
     Route: 048
     Dates: start: 20110503, end: 20111020
  3. GLIPIZIDE [Concomitant]
  4. LISINOPRIL [Concomitant]
  5. CRESTOR [Concomitant]
  6. LEVOTHYROXINE SODIUM [Concomitant]
  7. AMLODIPINE BESYLATE [Concomitant]
  8. FENOFIBRATE [Concomitant]
  9. FERROUS SULFATE TAB [Concomitant]
  10. ACTOS [Concomitant]
  11. CYMBALTA [Concomitant]

REACTIONS (1)
  - DEATH [None]
